FAERS Safety Report 25411181 (Version 1)
Quarter: 2025Q2

REPORT INFORMATION
  Report Type: Spontaneous
  Country: CN (occurrence: CN)
  Receive Date: 20250609
  Receipt Date: 20250609
  Transmission Date: 20250716
  Serious: Yes (Life-Threatening, Hospitalization, Disabling, Other)
  Sender: SANDOZ
  Company Number: CN-SANDOZ-SDZ2025CN039657

PATIENT
  Age: 60 Year
  Sex: Female

DRUGS (1)
  1. ZOLEDRONIC ACID [Suspect]
     Active Substance: ZOLEDRONIC ACID
     Indication: Osteoporosis postmenopausal
     Route: 041
     Dates: start: 20241002, end: 202411

REACTIONS (3)
  - Osteonecrosis of jaw [Unknown]
  - Tooth loss [Unknown]
  - Periodontitis [Unknown]

NARRATIVE: CASE EVENT DATE: 20250304
